FAERS Safety Report 8949497 (Version 2)
Quarter: 2012Q4

REPORT INFORMATION
  Report Type: 
  Country: DE (occurrence: DE)
  Receive Date: 20121206
  Receipt Date: 20121226
  Transmission Date: 20130627
  Serious: Yes (Hospitalization)
  Sender: FDA-Public Use
  Company Number: GXKR2012DE003725

PATIENT
  Age: 65 Year
  Sex: Male

DRUGS (2)
  1. CARBAMAZEPIN [Suspect]
     Dosage: UNK UKN, UNK
     Route: 048
  2. PROGRAF [Suspect]
     Dosage: UNK UKN, UNK
     Route: 048

REACTIONS (3)
  - Respiratory disorder [Unknown]
  - Weight decreased [Unknown]
  - Confusional state [Unknown]
